FAERS Safety Report 5732478-5 (Version None)
Quarter: 2008Q2

REPORT INFORMATION
  Report Type: 
  Country: None (occurrence: None)
  Receive Date: 20080508
  Receipt Date: 20080425
  Transmission Date: 20081010
  Serious: Yes (Hospitalization)
  Sender: FDA-Public Use
  Company Number: US-ELI_LILLY_AND_COMPANY-US200804005385

PATIENT
  Sex: Female

DRUGS (4)
  1. CYMBALTA [Suspect]
     Dosage: 1 D/F, UNK
     Dates: end: 20080420
  2. XANAX [Concomitant]
     Dosage: 1 D/F, UNK
  3. KLONOPIN [Concomitant]
     Dosage: 1 D/F, UNK
  4. AMBIEN [Concomitant]
     Dosage: 1 D/F, EACH EVENING

REACTIONS (1)
  - HOSPITALISATION [None]
